FAERS Safety Report 23440826 (Version 2)
Quarter: 2024Q1

REPORT INFORMATION
  Report Type: Report from Study
  Country: US (occurrence: US)
  Receive Date: 20240125
  Receipt Date: 20240227
  Transmission Date: 20240409
  Serious: Yes (Other)
  Sender: FDA-Public Use
  Company Number: US-UCBSA-2023054798

PATIENT
  Age: 67 Year
  Sex: Female
  Weight: 86.8 kg

DRUGS (1)
  1. CERTOLIZUMAB PEGOL [Suspect]
     Active Substance: CERTOLIZUMAB PEGOL
     Indication: Ankylosing spondylitis
     Dosage: 400 MILLIGRAM, EV 4 WEEKS
     Route: 058
     Dates: start: 20230920

REACTIONS (6)
  - Diverticulitis [Recovered/Resolved]
  - Acne [Recovered/Resolved]
  - Eczema [Not Recovered/Not Resolved]
  - Skin lesion [Recovering/Resolving]
  - Abdominal pain upper [Recovering/Resolving]
  - Product administered at inappropriate site [Unknown]

NARRATIVE: CASE EVENT DATE: 20231001
